FAERS Safety Report 6549240-6 (Version None)
Quarter: 2010Q1

REPORT INFORMATION
  Report Type: 
  Country: None (occurrence: None)
  Receive Date: 20100125
  Receipt Date: 20100113
  Transmission Date: 20100710
  Serious: Yes (Other)
  Sender: FDA-Public Use
  Company Number: BR-JNJFOC-20100105240

PATIENT
  Sex: Male
  Weight: 83 kg

DRUGS (5)
  1. REMICADE [Suspect]
     Indication: DRUG USE FOR UNKNOWN INDICATION
     Route: 042
     Dates: start: 20060501
  2. AMOXICILLIN [Suspect]
     Indication: ANTIBIOTIC THERAPY
  3. CIPRO [Suspect]
     Indication: ANTIBIOTIC THERAPY
  4. ATENOLOL [Concomitant]
     Indication: HYPERTENSION
  5. ANCORON [Concomitant]
     Indication: ARRHYTHMIA

REACTIONS (5)
  - ARRHYTHMIA [None]
  - BLISTER INFECTED [None]
  - PYREXIA [None]
  - SKIN FISSURES [None]
  - SWELLING [None]
